FAERS Safety Report 8582464-5 (Version None)
Quarter: 2012Q3

REPORT INFORMATION
  Report Type: 
  Country: None (occurrence: None)
  Receive Date: 20120809
  Receipt Date: 20120803
  Transmission Date: 20120928
  Serious: Yes (Hospitalization)
  Sender: FDA-Public Use
  Company Number: US-JNJFOC-20120207493

PATIENT
  Sex: Female
  Weight: 45 kg

DRUGS (3)
  1. REMICADE [Suspect]
     Indication: CROHN'S DISEASE
     Route: 042
     Dates: start: 20120103
  2. IMURAN [Concomitant]
  3. ANTIBIOTICS FOR IBD [Concomitant]
     Indication: INFLAMMATORY BOWEL DISEASE

REACTIONS (3)
  - PANCREATITIS ACUTE [None]
  - GASTROINTESTINAL FISTULA [None]
  - SMALL INTESTINAL OBSTRUCTION [None]
